FAERS Safety Report 4947078-4 (Version None)
Quarter: 2006Q1

REPORT INFORMATION
  Report Type: 
  Country: None (occurrence: None)
  Receive Date: 20060317
  Receipt Date: 20060310
  Transmission Date: 20060701
  Serious: Yes (Hospitalization)
  Sender: FDA-Public Use
  Company Number: 2006SE01413

PATIENT
  Age: 66 Year
  Sex: Female

DRUGS (4)
  1. BLOPRESS [Suspect]
     Route: 048
     Dates: start: 20010801
  2. DOXAZOSIN [Concomitant]
     Route: 048
     Dates: start: 20010801
  3. ATORVASTATIN CALCIUM [Concomitant]
     Route: 048
     Dates: start: 20010801
  4. AROTINOLOL [Concomitant]
     Indication: HYPERTENSION
     Route: 048
     Dates: start: 20040201, end: 20040401

REACTIONS (4)
  - BRADYARRHYTHMIA [None]
  - CARDIAC ARREST [None]
  - CORONARY ARTERY STENOSIS [None]
  - SYNCOPE [None]
